FAERS Safety Report 8105491-0 (Version None)
Quarter: 2012Q1

REPORT INFORMATION
  Report Type: 
  Country: None (occurrence: None)
  Receive Date: 20120201
  Receipt Date: 20120127
  Transmission Date: 20120608
  Serious: Yes (Hospitalization)
  Sender: FDA-Public Use
  Company Number: IT-PFIZER INC-2012008080

PATIENT
  Age: 86 Year
  Sex: Female

DRUGS (7)
  1. PIPERACILLIN AND TAZOBACTAM [Suspect]
     Indication: PNEUMONIA
     Dosage: 3 DF, DAILY
     Route: 042
     Dates: start: 20110601, end: 20110611
  2. LEVOFLOXACIN [Suspect]
     Indication: PNEUMONIA
     Dosage: 1 DF, DAILY
     Route: 042
     Dates: start: 20110604, end: 20110611
  3. ASPIRIN [Concomitant]
  4. MOTILIUM [Concomitant]
  5. PANTOPRAZOLE SODIUM [Concomitant]
  6. REMERON [Concomitant]
  7. HEPARIN-FRACTION, SODIUM SALT [Concomitant]

REACTIONS (2)
  - CLOSTRIDIUM DIFFICILE COLITIS [None]
  - PSEUDOMEMBRANOUS COLITIS [None]
